FAERS Safety Report 12098448 (Version 2)
Quarter: 2016Q1

REPORT INFORMATION
  Report Type: Spontaneous
  Country: CA (occurrence: CA)
  Receive Date: 20160222
  Receipt Date: 20160328
  Transmission Date: 20160526
  Serious: Yes (Other)
  Sender: FDA-Public Use
  Company Number: CA-ROCHE-1503365

PATIENT
  Age: 53 Year
  Sex: Female

DRUGS (6)
  1. PREDNISONE. [Suspect]
     Active Substance: PREDNISONE
     Indication: INFLUENZA
     Route: 065
     Dates: start: 20141201
  2. XOLAIR [Suspect]
     Active Substance: OMALIZUMAB
     Indication: ASTHMA
     Route: 058
     Dates: start: 20130502
  3. XOLAIR [Suspect]
     Active Substance: OMALIZUMAB
     Route: 058
     Dates: start: 20141028
  4. XOLAIR [Suspect]
     Active Substance: OMALIZUMAB
     Route: 058
     Dates: start: 20150130
  5. PREDNISONE. [Suspect]
     Active Substance: PREDNISONE
     Indication: PHARYNGEAL OEDEMA
     Route: 065
     Dates: start: 2014
  6. SPIRIVA [Concomitant]
     Active Substance: TIOTROPIUM BROMIDE MONOHYDRATE

REACTIONS (26)
  - Arthritis [Unknown]
  - Feeling cold [Unknown]
  - Asthma [Unknown]
  - Cough [Unknown]
  - Agitation [Unknown]
  - Substance-induced psychotic disorder [Unknown]
  - Dyspnoea [Unknown]
  - Pulmonary function test abnormal [Unknown]
  - Logorrhoea [Unknown]
  - Oxygen saturation decreased [Unknown]
  - Respiratory tract irritation [Unknown]
  - Choking sensation [Unknown]
  - Restlessness [Unknown]
  - Pharyngeal oedema [Unknown]
  - Hypoventilation [Unknown]
  - Respiratory rate increased [Unknown]
  - Joint swelling [Unknown]
  - Suicidal ideation [Unknown]
  - Multiple allergies [Unknown]
  - Crying [Unknown]
  - Oedema peripheral [Unknown]
  - Dysphonia [Unknown]
  - Abnormal behaviour [Unknown]
  - Breath sounds abnormal [Unknown]
  - Throat tightness [Unknown]
  - Influenza [Unknown]

NARRATIVE: CASE EVENT DATE: 2014
